FAERS Safety Report 18164300 (Version 2)
Quarter: 2020Q4

REPORT INFORMATION
  Report Type: Spontaneous
  Country: US (occurrence: US)
  Receive Date: 20200818
  Receipt Date: 20201015
  Transmission Date: 20210113
  Serious: Yes (Other)
  Sender: FDA-Public Use
  Company Number: US-GILEAD-2020-0490121

PATIENT
  Age: 58 Year
  Sex: Female
  Weight: 63.5 kg

DRUGS (51)
  1. CHANTIX [Concomitant]
     Active Substance: VARENICLINE TARTRATE
  2. DOXYCYCLINE. [Concomitant]
     Active Substance: DOXYCYCLINE
  3. MEGESTROL [Concomitant]
     Active Substance: MEGESTROL
  4. PROMETHAZINE [Concomitant]
     Active Substance: PROMETHAZINE HYDROCHLORIDE
  5. SMZ-TMP [Concomitant]
     Active Substance: SULFAMETHOXAZOLE\TRIMETHOPRIM
  6. SYMBICORT [Concomitant]
     Active Substance: BUDESONIDE\FORMOTEROL FUMARATE DIHYDRATE
  7. FLUTICASONE. [Concomitant]
     Active Substance: FLUTICASONE
  8. LIPITOR [Concomitant]
     Active Substance: ATORVASTATIN CALCIUM
  9. LORATADINE. [Concomitant]
     Active Substance: LORATADINE
  10. NICOTINE. [Concomitant]
     Active Substance: NICOTINE
  11. PREDNISONE. [Concomitant]
     Active Substance: PREDNISONE
  12. TIZANIDINE. [Concomitant]
     Active Substance: TIZANIDINE
  13. TRUVADA [Suspect]
     Active Substance: EMTRICITABINE\TENOFOVIR DISOPROXIL FUMARATE
     Indication: HIV INFECTION
     Dosage: UNK
     Route: 065
     Dates: start: 200604, end: 200608
  14. CEPHALEXINE [Concomitant]
     Active Substance: CEPHALEXIN
  15. DULOXETINE. [Concomitant]
     Active Substance: DULOXETINE
  16. HYDROXYZINE [Concomitant]
     Active Substance: HYDROXYZINE HYDROCHLORIDE
  17. MIRTAZAPINE. [Concomitant]
     Active Substance: MIRTAZAPINE
  18. PRAVASTATIN. [Concomitant]
     Active Substance: PRAVASTATIN
  19. TRAZODONE [Concomitant]
     Active Substance: TRAZODONE HYDROCHLORIDE
  20. UNIVASC [Concomitant]
     Active Substance: MOEXIPRIL HYDROCHLORIDE
  21. ATRIPLA [Suspect]
     Active Substance: EFAVIRENZ\EMTRICITABINE\TENOFOVIR DISOPROXIL FUMARATE
     Indication: HIV INFECTION
     Dosage: UNK
     Route: 048
     Dates: start: 2006
  22. BIKTARVY [Concomitant]
     Active Substance: BICTEGRAVIR SODIUM\EMTRICITABINE\TENOFOVIR ALAFENAMIDE FUMARATE
  23. ATORVASTATIN [Concomitant]
     Active Substance: ATORVASTATIN
  24. ATROVENT [Concomitant]
     Active Substance: IPRATROPIUM BROMIDE
  25. AZITHROMYCIN ANHYDROUS. [Concomitant]
     Active Substance: AZITHROMYCIN ANHYDROUS
  26. CLONAZEPAM. [Concomitant]
     Active Substance: CLONAZEPAM
  27. LEVOFLOXACIN. [Concomitant]
     Active Substance: LEVOFLOXACIN
  28. MELOXICAM. [Concomitant]
     Active Substance: MELOXICAM
  29. METHYLPREDNISOLONE. [Concomitant]
     Active Substance: METHYLPREDNISOLONE
  30. RANITIDINE. [Concomitant]
     Active Substance: RANITIDINE
  31. SERTRALINE [Concomitant]
     Active Substance: SERTRALINE HYDROCHLORIDE
  32. PROVENTIL HFA [SALBUTAMOL] [Concomitant]
  33. GENVOYA [Concomitant]
     Active Substance: COBICISTAT\ELVITEGRAVIR\EMTRICITABINE\TENOFOVIR ALAFENAMIDE FUMARATE
  34. ATROVENT HFA [Concomitant]
     Active Substance: IPRATROPIUM BROMIDE
  35. ZOLPIDEM [Concomitant]
     Active Substance: ZOLPIDEM TARTRATE
  36. ATRIPLA [Suspect]
     Active Substance: EFAVIRENZ\EMTRICITABINE\TENOFOVIR DISOPROXIL FUMARATE
     Dosage: UNK
     Route: 048
     Dates: start: 201611, end: 201805
  37. ACYCLOVIR [ACICLOVIR] [Concomitant]
     Active Substance: ACYCLOVIR
  38. ALBUTEROL [SALBUTAMOL] [Concomitant]
     Active Substance: ALBUTEROL
  39. AMOXICILLIN. [Concomitant]
     Active Substance: AMOXICILLIN
  40. ESCITALOPRAM [Concomitant]
     Active Substance: ESCITALOPRAM OXALATE
  41. MEGACE [Concomitant]
     Active Substance: MEGESTROL ACETATE
  42. MUPIROCIN. [Concomitant]
     Active Substance: MUPIROCIN
  43. NASONEX [Concomitant]
     Active Substance: MOMETASONE FUROATE
  44. ATRIPLA [Suspect]
     Active Substance: EFAVIRENZ\EMTRICITABINE\TENOFOVIR DISOPROXIL FUMARATE
     Dosage: UNK
     Route: 048
     Dates: start: 200608, end: 201609
  45. TRIUMEQ [Concomitant]
     Active Substance: ABACAVIR SULFATE\DOLUTEGRAVIR SODIUM\LAMIVUDINE
  46. PROAIR HFA [Concomitant]
     Active Substance: ALBUTEROL SULFATE
  47. BUPROPION. [Concomitant]
     Active Substance: BUPROPION
  48. CIPROFLOXACIN. [Concomitant]
     Active Substance: CIPROFLOXACIN
  49. GEODON [Concomitant]
     Active Substance: ZIPRASIDONE HYDROCHLORIDE\ZIPRASIDONE MESYLATE
  50. OXYBUTYNIN. [Concomitant]
     Active Substance: OXYBUTYNIN CHLORIDE
  51. PAXIL [Concomitant]
     Active Substance: PAROXETINE HYDROCHLORIDE

REACTIONS (8)
  - Pain [Unknown]
  - Rib fracture [Not Recovered/Not Resolved]
  - Osteoporosis [Not Recovered/Not Resolved]
  - Chronic kidney disease [Not Recovered/Not Resolved]
  - Spinal disorder [Unknown]
  - Anhedonia [Unknown]
  - Anxiety [Unknown]
  - Emotional distress [Unknown]

NARRATIVE: CASE EVENT DATE: 20170303
